FAERS Safety Report 10540146 (Version 1)
Quarter: 2014Q4

REPORT INFORMATION
  Report Type: Spontaneous
  Country: US (occurrence: None)
  Receive Date: 20141023
  Receipt Date: 20141023
  Transmission Date: 20150529
  Serious: No
  Sender: FDA-Public Use
  Company Number: None

PATIENT
  Age: 68 Year
  Sex: Male
  Weight: 91.4 kg

DRUGS (1)
  1. RIVAROXABAN [Suspect]
     Active Substance: RIVAROXABAN
     Indication: DEEP VEIN THROMBOSIS
     Dosage: 20 MG, EVERY DAY, PO?
     Route: 048
     Dates: start: 20140227, end: 20140627

REACTIONS (4)
  - Headache [None]
  - Myalgia [None]
  - Dyspnoea [None]
  - Insomnia [None]

NARRATIVE: CASE EVENT DATE: 20140627
